FAERS Safety Report 10904301 (Version 1)
Quarter: 2015Q1

REPORT INFORMATION
  Report Type: Spontaneous
  Country: US (occurrence: US)
  Receive Date: 20150311
  Receipt Date: 20150311
  Transmission Date: 20150721
  Serious: Yes (Other)
  Sender: FDA-Public Use
  Company Number: US-PFIZER INC-2015088426

PATIENT
  Age: 56 Year
  Sex: Female
  Weight: 52 kg

DRUGS (2)
  1. CHANTIX [Suspect]
     Active Substance: VARENICLINE TARTRATE
     Indication: SMOKING CESSATION THERAPY
     Dosage: UNK
  2. HYDROCODONE [Concomitant]
     Active Substance: HYDROCODONE
     Indication: PAIN
     Dosage: 10 MG, 3-4 TIMES A DAY
     Route: 048

REACTIONS (5)
  - Dizziness [Recovered/Resolved]
  - Central nervous system lesion [Unknown]
  - Hallucination, visual [Recovered/Resolved]
  - Feeling abnormal [Recovered/Resolved]
  - Multiple sclerosis [Unknown]
